FAERS Safety Report 7652927-5 (Version None)
Quarter: 2011Q3

REPORT INFORMATION
  Report Type: 
  Country: None (occurrence: None)
  Receive Date: 20110803
  Receipt Date: 20110705
  Transmission Date: 20111222
  Serious: No
  Sender: FDA-Public Use
  Company Number: US-BAYER-2011-059848

PATIENT
  Age: 72 Year
  Sex: Female
  Weight: 46.712 kg

DRUGS (3)
  1. HYDROCODONE [Concomitant]
     Route: 048
  2. CLARITIN-D 24 HOUR [Concomitant]
     Route: 048
  3. ALEVE (CAPLET) [Suspect]
     Indication: ANALGESIC THERAPY
     Dosage: 2-1-1, TID
     Route: 048

REACTIONS (1)
  - NO ADVERSE EVENT [None]
